FAERS Safety Report 14193146 (Version 1)
Quarter: 2017Q4

REPORT INFORMATION
  Report Type: Spontaneous
  Country: CH (occurrence: CH)
  Receive Date: 20171115
  Receipt Date: 20171115
  Transmission Date: 20180321
  Serious: Yes (Hospitalization, Other)
  Sender: FDA-Public Use
  Company Number: CH-MYLANLABS-2017M1071575

PATIENT
  Age: 0 Year
  Sex: Male
  Weight: 3.8 kg

DRUGS (10)
  1. CIPRALEX [Suspect]
     Active Substance: ESCITALOPRAM OXALATE
     Dosage: 10 MG, QD
     Route: 064
     Dates: start: 2016
  2. BRUFEN [Suspect]
     Active Substance: IBUPROFEN
     Indication: FRACTURE PAIN
     Route: 064
     Dates: start: 201611
  3. TEMESTA (LORAZEPAM) [Suspect]
     Active Substance: LORAZEPAM
     Indication: FRACTURE PAIN
     Dosage: 1 MG, QID
     Route: 064
     Dates: start: 201611, end: 2016
  4. DAFALGAN [Suspect]
     Active Substance: ACETAMINOPHEN
     Indication: FRACTURE PAIN
     Route: 064
     Dates: start: 201611
  5. CIPRALEX [Suspect]
     Active Substance: ESCITALOPRAM OXALATE
     Indication: FRACTURE PAIN
     Dosage: 20 MG, QD
     Route: 064
     Dates: start: 2016
  6. SEROQUEL [Suspect]
     Active Substance: QUETIAPINE FUMARATE
     Indication: FRACTURE PAIN
     Dosage: 50 MG, QD
     Route: 064
     Dates: start: 2016
  7. STILNOX [Suspect]
     Active Substance: ZOLPIDEM TARTRATE
     Indication: FRACTURE PAIN
     Dosage: 10 MG, QD
     Route: 064
     Dates: start: 2016
  8. LYRICA [Suspect]
     Active Substance: PREGABALIN
     Indication: FRACTURE PAIN
     Route: 064
     Dates: start: 201611, end: 2016
  9. ABILIFY [Suspect]
     Active Substance: ARIPIPRAZOLE
     Indication: FRACTURE PAIN
     Dosage: 10 MG, QD
     Route: 064
     Dates: start: 2016
  10. LAMICTAL [Suspect]
     Active Substance: LAMOTRIGINE
     Indication: FRACTURE PAIN
     Dosage: 150 MG, QD
     Route: 064
     Dates: start: 2016

REACTIONS (2)
  - Hypoglycaemia neonatal [Recovered/Resolved]
  - Foetal exposure during pregnancy [Recovered/Resolved]

NARRATIVE: CASE EVENT DATE: 201610
